FAERS Safety Report 24016432 (Version 1)
Quarter: 2024Q2

REPORT INFORMATION
  Report Type: Spontaneous
  Country: US (occurrence: US)
  Receive Date: 20240626
  Receipt Date: 20240626
  Transmission Date: 20240715
  Serious: Yes (Other)
  Sender: FDA-Public Use
  Company Number: US-SA-SAC20240621000900

PATIENT
  Age: 80 Year
  Sex: Female
  Weight: 93 kg

DRUGS (3)
  1. DUPIXENT [Suspect]
     Active Substance: DUPILUMAB
     Indication: Osteoporosis
     Dosage: 300 MG, QOW
     Route: 058
     Dates: start: 2023
  2. BUMETANIDE [Suspect]
     Active Substance: BUMETANIDE
     Dosage: UNK
  3. CLINDAMYCIN [Suspect]
     Active Substance: CLINDAMYCIN
     Indication: Blister
     Dosage: UNK

REACTIONS (8)
  - Knee arthroplasty [Unknown]
  - Blister [Unknown]
  - Rash erythematous [Unknown]
  - Peripheral swelling [Unknown]
  - Gait inability [Unknown]
  - Condition aggravated [Unknown]
  - Eczema [Unknown]
  - Product use in unapproved indication [Unknown]

NARRATIVE: CASE EVENT DATE: 20230101
